FAERS Safety Report 15589933 (Version 1)
Quarter: 2018Q4

REPORT INFORMATION
  Report Type: Spontaneous
  Country: US (occurrence: US)
  Receive Date: 20181106
  Receipt Date: 20181106
  Transmission Date: 20190205
  Serious: No
  Sender: FDA-Public Use
  Company Number: US-009507513-1810USA006668

PATIENT
  Age: 20 Year
  Sex: Female
  Weight: 68.03 kg

DRUGS (6)
  1. NUVARING [Suspect]
     Active Substance: ETHINYL ESTRADIOL\ETONOGESTREL
     Indication: CONTRACEPTION
     Dosage: 1 DOSE FROM, 3 WEEKS IN/ONE WEEK RING FREE (AS DIRECTED)
     Route: 067
     Dates: start: 20181007
  2. NUVARING [Suspect]
     Active Substance: ETHINYL ESTRADIOL\ETONOGESTREL
     Indication: ENDOMETRIOSIS
     Dosage: 1 DOSE FROM, 3 WEEKS IN/ONE WEEK RING FREE (AS DIRECTED)
     Route: 067
     Dates: start: 201404
  3. NUVARING [Suspect]
     Active Substance: ETHINYL ESTRADIOL\ETONOGESTREL
     Indication: DYSMENORRHOEA
  4. LAMOTRIGINE. [Concomitant]
     Active Substance: LAMOTRIGINE
  5. LORNOXICAM [Concomitant]
     Active Substance: LORNOXICAM
  6. SEROQUEL [Concomitant]
     Active Substance: QUETIAPINE FUMARATE

REACTIONS (5)
  - Device kink [Unknown]
  - Product use in unapproved indication [Unknown]
  - Device expulsion [Unknown]
  - Anxiety [Not Recovered/Not Resolved]
  - Medical device site discomfort [Not Recovered/Not Resolved]

NARRATIVE: CASE EVENT DATE: 201404
